FAERS Safety Report 6883388-1 (Version None)
Quarter: 2010Q3

REPORT INFORMATION
  Report Type: 
  Country: None (occurrence: None)
  Receive Date: 20100727
  Receipt Date: 20100713
  Transmission Date: 20110219
  Serious: Yes (Disabling, Other)
  Sender: FDA-Public Use
  Company Number: ACO_01417_2010

PATIENT
  Age: 71 Year
  Sex: Male

DRUGS (4)
  1. AMPYRA [Suspect]
     Indication: GAIT DISTURBANCE
     Dosage: (10 MG BID ORAL) (10 MG QD ORAL)
     Route: 048
     Dates: start: 20100601, end: 20100711
  2. AMPYRA [Suspect]
     Indication: GAIT DISTURBANCE
     Dosage: (10 MG BID ORAL) (10 MG QD ORAL)
     Route: 048
     Dates: start: 20100712
  3. LYRICA [Concomitant]
  4. CARDIAC MEDICATIONS [Concomitant]

REACTIONS (3)
  - BEDRIDDEN [None]
  - CONDITION AGGRAVATED [None]
  - TRIGEMINAL NEURALGIA [None]
